FAERS Safety Report 6708219-1 (Version None)
Quarter: 2010Q2

REPORT INFORMATION
  Report Type: 
  Country: None (occurrence: None)
  Receive Date: 20100503
  Receipt Date: 20090323
  Transmission Date: 20101027
  Serious: No
  Sender: FDA-Public Use
  Company Number: US-ASTRAZENECA-2009UW07477

PATIENT
  Age: 34 Year
  Sex: Female
  Weight: 52.2 kg

DRUGS (3)
  1. NEXIUM [Suspect]
     Indication: GASTROOESOPHAGEAL REFLUX DISEASE
     Route: 048
     Dates: start: 20090201, end: 20090322
  2. WELLBUTRIN [Concomitant]
     Indication: DEPRESSION
     Route: 048
     Dates: start: 20040601
  3. YAZ [Concomitant]
     Indication: CONTRACEPTION
     Route: 048

REACTIONS (5)
  - ABDOMINAL PAIN [None]
  - FLATULENCE [None]
  - HAEMATOCHEZIA [None]
  - MENSTRUAL DISORDER [None]
  - WEIGHT INCREASED [None]
